FAERS Safety Report 8401891-X (Version None)
Quarter: 2012Q2

REPORT INFORMATION
  Report Type: 
  Country: None (occurrence: None)
  Receive Date: 20120601
  Receipt Date: 20120316
  Transmission Date: 20120825
  Serious: No
  Sender: FDA-Public Use
  Company Number: US-ABBOTT-12P-163-0916200-00

PATIENT
  Sex: Male

DRUGS (1)
  1. MARINOL [Suspect]
     Indication: PRODUCT USED FOR UNKNOWN INDICATION

REACTIONS (2)
  - DRUG SCREEN POSITIVE [None]
  - ACCIDENTAL EXPOSURE [None]
